FAERS Safety Report 6834610-9 (Version None)
Quarter: 2010Q3

REPORT INFORMATION
  Report Type: 
  Country: None (occurrence: None)
  Receive Date: 20100712
  Receipt Date: 20070524
  Transmission Date: 20110219
  Serious: No
  Sender: FDA-Public Use
  Company Number: US-PFIZER INC-2007034181

PATIENT
  Sex: Female
  Weight: 53.52 kg

DRUGS (10)
  1. CHANTIX [Suspect]
     Indication: SMOKING CESSATION THERAPY
     Dates: start: 20070423, end: 20070501
  2. XANAX [Concomitant]
  3. COMPAZINE [Concomitant]
  4. ALL OTHER THERAPEUTIC PRODUCTS [Concomitant]
  5. PEPCID [Concomitant]
  6. PRILOSEC [Concomitant]
  7. ALBUTEROL [Concomitant]
     Indication: ASTHMA
  8. ADVAIR DISKUS 100/50 [Concomitant]
     Indication: ASTHMA
  9. NICOTINE [Concomitant]
  10. WELLBUTRIN [Concomitant]

REACTIONS (17)
  - ABDOMINAL DISTENSION [None]
  - ABDOMINAL PAIN UPPER [None]
  - ABNORMAL DREAMS [None]
  - ANGER [None]
  - COUGH DECREASED [None]
  - DEPRESSION [None]
  - DRUG INEFFECTIVE [None]
  - DYSGEUSIA [None]
  - FEELING ABNORMAL [None]
  - HYPERSOMNIA [None]
  - HYPOAESTHESIA [None]
  - INCREASED APPETITE [None]
  - NERVOUSNESS [None]
  - PERSONALITY DISORDER [None]
  - RESTLESSNESS [None]
  - SEDATION [None]
  - TOBACCO USER [None]
